FAERS Safety Report 6168096-7 (Version None)
Quarter: 2009Q2

REPORT INFORMATION
  Report Type: 
  Country: None (occurrence: None)
  Receive Date: 20090423
  Receipt Date: 20090423
  Transmission Date: 20091009
  Serious: Yes (Other)
  Sender: FDA-Public Use
  Company Number: None

PATIENT
  Age: 22 Year
  Sex: Female
  Weight: 78.9259 kg

DRUGS (1)
  1. DEPO-PROVERA [Suspect]
     Indication: CONTRACEPTION
     Dosage: 1 SHOT EVERY 3 MONTHS SQ
     Route: 058
     Dates: start: 20081028, end: 20090128

REACTIONS (7)
  - ANXIETY [None]
  - BREAST PAIN [None]
  - DEPRESSION [None]
  - HEADACHE [None]
  - LIBIDO DECREASED [None]
  - MENORRHAGIA [None]
  - WEIGHT INCREASED [None]
